FAERS Safety Report 6661192-7 (Version None)
Quarter: 2010Q1

REPORT INFORMATION
  Report Type: 
  Country: None (occurrence: None)
  Receive Date: 20100331
  Receipt Date: 20100324
  Transmission Date: 20100710
  Serious: Yes (Hospitalization)
  Sender: FDA-Public Use
  Company Number: B0642859B

PATIENT
  Sex: Male

DRUGS (5)
  1. LAPATINIB [Suspect]
     Dosage: 1250MG PER DAY
     Route: 048
     Dates: start: 20100312, end: 20100323
  2. DOCETAXEL [Suspect]
     Dosage: 140MG CUMULATIVE DOSE
     Route: 042
     Dates: start: 20100311
  3. RANITIDINE [Concomitant]
     Dates: start: 20100304, end: 20100323
  4. METOCLOPRAMIDE [Concomitant]
     Dates: start: 20100312
  5. GABAPENTIN [Concomitant]
     Dates: start: 20100310

REACTIONS (1)
  - GASTROINTESTINAL HAEMORRHAGE [None]
